FAERS Safety Report 9136418 (Version 1)
Quarter: 2013Q1

REPORT INFORMATION
  Report Type: Spontaneous
  Country: US (occurrence: US)
  Receive Date: 20130219
  Receipt Date: 20130219
  Transmission Date: 20140127
  Serious: No
  Sender: FDA-Public Use
  Company Number: US-BRISTOL-MYERS SQUIBB COMPANY-16833923

PATIENT
  Age: 39 Year
  Sex: Female
  Weight: 180 kg

DRUGS (8)
  1. ORENCIA FOR INJ [Suspect]
     Indication: RHEUMATOID ARTHRITIS
     Route: 058
     Dates: start: 20120126
  2. GABAPENTIN [Concomitant]
  3. LORAZEPAM [Concomitant]
  4. OMEPRAZOLE [Concomitant]
  5. OXYCONTIN [Concomitant]
  6. PRISTIQ [Concomitant]
  7. TOPAMAX [Concomitant]
  8. ZOFRAN [Concomitant]

REACTIONS (2)
  - Nausea [Unknown]
  - Wrong technique in drug usage process [Unknown]
